FAERS Safety Report 5063567-9 (Version None)
Quarter: 2006Q3

REPORT INFORMATION
  Report Type: 
  Country: None (occurrence: None)
  Receive Date: 20060727
  Receipt Date: 20060721
  Transmission Date: 20061208
  Serious: Yes (Hospitalization)
  Sender: FDA-Public Use
  Company Number: US-SANOFI-SYNTHELABO-F03200600169

PATIENT
  Sex: Male
  Weight: 63.69 kg

DRUGS (7)
  1. ALLOPURINOL [Concomitant]
     Dosage: UNK
     Route: 048
  2. LEVAQUIN [Concomitant]
     Dosage: UNK
     Route: 048
  3. BACTRIM [Concomitant]
     Dosage: UNK
     Route: 048
  4. VALTREX [Concomitant]
     Dosage: UNK
     Route: 048
  5. VORICONAZOLE [Concomitant]
     Dosage: UNK
     Route: 048
  6. NEULASTA [Concomitant]
     Route: 058
     Dates: start: 20060710
  7. OXALIPLATIN [Suspect]
     Indication: CHRONIC LYMPHOCYTIC LEUKAEMIA
     Route: 042
     Dates: start: 20060705, end: 20060708

REACTIONS (1)
  - TUMOUR LYSIS SYNDROME [None]
